FAERS Safety Report 13948429 (Version 1)
Quarter: 2017Q3

REPORT INFORMATION
  Report Type: Spontaneous
  Country: US (occurrence: None)
  Receive Date: 20170907
  Receipt Date: 20170907
  Transmission Date: 20171128
  Serious: No
  Sender: FDA-Public Use
  Company Number: None

PATIENT
  Age: 49 Year
  Sex: Male

DRUGS (1)
  1. HUMIRA [Suspect]
     Active Substance: ADALIMUMAB
     Indication: RHEUMATOID ARTHRITIS
     Route: 058
     Dates: start: 20170707

REACTIONS (5)
  - Abdominal pain lower [None]
  - Chest pain [None]
  - Renal pain [None]
  - Blood urine present [None]
  - Dyspnoea [None]

NARRATIVE: CASE EVENT DATE: 20170907
